FAERS Safety Report 7205646-3 (Version None)
Quarter: 2010Q4

REPORT INFORMATION
  Report Type: 
  Country: None (occurrence: None)
  Receive Date: 20101231
  Receipt Date: 20101220
  Transmission Date: 20110411
  Serious: Yes (Hospitalization, Other)
  Sender: FDA-Public Use
  Company Number: US-ELI_LILLY_AND_COMPANY-US201005007057

PATIENT
  Sex: Female

DRUGS (15)
  1. FORTEO [Suspect]
     Indication: OSTEOPOROSIS
     Dosage: 20 UG, UNKNOWN
     Route: 065
     Dates: start: 20091201
  2. LISINOPRIL [Concomitant]
     Dosage: 10 MG, DAILY (1/D)
  3. BUMETANIDE [Concomitant]
     Dosage: 2 MG, DAILY (1/D)
  4. LEVOTHYROXINE [Concomitant]
     Dosage: 0.088 UG, DAILY (1/D)
  5. BUSPIRONE HCL [Concomitant]
     Dosage: 15 MG, 2/D
  6. LOVASTATIN [Concomitant]
     Dosage: 40 MG, DAILY (1/D)
  7. AGGRENOX [Concomitant]
     Dosage: 200MG/25MG, 2/D
  8. TRICOR [Concomitant]
     Dosage: 145 MG, DAILY (1/D)
  9. CALCIUM [Concomitant]
     Dosage: 600 MG, DAILY (1/D)
  10. VITAMIN D [Concomitant]
     Dosage: 400 IU, WEEKLY (1/W)
  11. MULTI-VITAMIN [Concomitant]
     Dosage: UNK, DAILY (1/D)
  12. CLONAZEPAM [Concomitant]
     Dosage: 2 MG, EACH EVENING
  13. GABAPENTIN [Concomitant]
     Dosage: 600 MG, EACH EVENING
  14. VITAMIN TAB [Concomitant]
     Dosage: 50000 MG, WEEKLY (1/W)
  15. CYCLOBENZAPRINE [Concomitant]
     Indication: HEADACHE
     Dosage: 5 MG, UNK

REACTIONS (7)
  - CHILLS [None]
  - CYSTITIS [None]
  - DIARRHOEA [None]
  - FEELING ABNORMAL [None]
  - HYPERHIDROSIS [None]
  - PYREXIA [None]
  - TREMOR [None]
